FAERS Safety Report 23611151 (Version 1)
Quarter: 2024Q1

REPORT INFORMATION
  Report Type: Spontaneous
  Country: US (occurrence: None)
  Receive Date: 20240308
  Receipt Date: 20240308
  Transmission Date: 20240409
  Serious: Yes (Death)
  Sender: FDA-Public Use
  Company Number: None

PATIENT
  Age: 45 Year
  Sex: Male

DRUGS (1)
  1. GLEOSTINE [Suspect]
     Active Substance: LOMUSTINE
     Indication: Malignant central nervous system neoplasm
     Dosage: OTHER FREQUENCY : SEE EVENT;?OTHER ROUTE : ORAL;?
     Route: 050
     Dates: start: 202311

REACTIONS (1)
  - Death [None]

NARRATIVE: CASE EVENT DATE: 20240210
